FAERS Safety Report 6558281-4 (Version None)
Quarter: 2010Q1

REPORT INFORMATION
  Report Type: 
  Country: None (occurrence: None)
  Receive Date: 20100128
  Receipt Date: 20100128
  Transmission Date: 20100710
  Serious: Yes (Life-Threatening, Hospitalization, Disabling)
  Sender: FDA-Public Use
  Company Number: None

PATIENT
  Age: 53 Year
  Sex: Male
  Weight: 74.8435 kg

DRUGS (2)
  1. ISOVUE-300 [Suspect]
     Indication: COMPUTERISED TOMOGRAM
     Dates: start: 20080208
  2. ISOVUE-300 [Suspect]
     Indication: UROGRAM
     Dates: start: 20080208

REACTIONS (9)
  - ALOPECIA [None]
  - ASTHENIA [None]
  - BLOOD URINE PRESENT [None]
  - HEART RATE INCREASED [None]
  - MUSCLE TWITCHING [None]
  - PAIN [None]
  - QUALITY OF LIFE DECREASED [None]
  - VISION BLURRED [None]
  - WALKING AID USER [None]
